FAERS Safety Report 9248303 (Version 1)
Quarter: 2013Q1

REPORT INFORMATION
  Report Type: Spontaneous
  Country: US (occurrence: None)
  Receive Date: 20130305
  Receipt Date: 20130305
  Transmission Date: 20140127
  Serious: Yes (Death, Hospitalization)
  Sender: FDA-Public Use
  Company Number: 163-21880-12093173

PATIENT
  Age: 63 Year
  Sex: Male
  Weight: 77.57 kg

DRUGS (19)
  1. REVLIMID [Suspect]
     Indication: PLASMA CELL MYELOMA
     Dosage: 21 IN 28 D, PO
     Route: 048
     Dates: start: 20120921
  2. ALLOPURINOL [Concomitant]
  3. DEXAMETHASONE (DEXAMETHASONE) [Concomitant]
  4. VELCADE (BORTEZOMIB) [Concomitant]
  5. DIGOXIN (DIGOXIN) [Concomitant]
  6. CAPTOPRIL (CAPTOPRIL) [Concomitant]
  7. ASPIRIN (ACETYLSALICYLIC ACID) [Concomitant]
  8. LASIX (FUROSEMIDE) [Concomitant]
  9. ACE INHIBITOR (ACE INHIBITOR) [Concomitant]
  10. ALPHA BLOCKER (ALPHA AND BETA BLOCKING AGENTS) [Concomitant]
  11. BETA BLOCKER (BETA BLOCKING AGENTS) [Concomitant]
  12. COREG (CARVEDILOL) [Concomitant]
  13. PACKED RED (RED BLOOD CELLS) [Concomitant]
  14. OXYGEN (OXYGEN) [Concomitant]
  15. POTASSIUM  CHLORIDE (POTASSIUM CHLORIDE) [Concomitant]
  16. HYDROCODONE /APAP(VICODIN) (UNKNOWN) [Concomitant]
  17. DOCUSATE SODIUM (DOCUSATE SODIUM) [Concomitant]
  18. BENADRYL (DIPHENYDRAMINE) [Concomitant]
  19. ZOFRAN (ONDANSETRON HYDROCHLORIDE) [Concomitant]

REACTIONS (1)
  - Cardiac failure congestive [None]
